FAERS Safety Report 19014031 (Version 1)
Quarter: 2021Q1

REPORT INFORMATION
  Report Type: Spontaneous
  Country: US (occurrence: US)
  Receive Date: 20210316
  Receipt Date: 20210316
  Transmission Date: 20210420
  Serious: No
  Sender: FDA-Public Use
  Company Number: US-MYLANLABS-2021M1013542

PATIENT
  Sex: Female
  Weight: 65 kg

DRUGS (4)
  1. BUPROPION. [Concomitant]
     Active Substance: BUPROPION
     Dosage: UNK
  2. HYDROCODONE [Concomitant]
     Active Substance: HYDROCODONE
     Indication: PAIN
     Dosage: UNK
  3. GABAPENTIN. [Concomitant]
     Active Substance: GABAPENTIN
     Indication: PAIN
     Dosage: UNK
  4. FENTANYL TRANSDERMAL SYSTEM [Suspect]
     Active Substance: FENTANYL
     Indication: BACK PAIN
     Dosage: 12 MICROGRAM, Q3D
     Route: 062

REACTIONS (2)
  - Product quality issue [Unknown]
  - Drug ineffective [Not Recovered/Not Resolved]
